FAERS Safety Report 4569509-4 (Version None)
Quarter: 2005Q1

REPORT INFORMATION
  Report Type: 
  Country: None (occurrence: None)
  Receive Date: 20050201
  Receipt Date: 20050119
  Transmission Date: 20050727
  Serious: Yes (Death)
  Sender: FDA-Public Use
  Company Number: 2004226443JP

PATIENT
  Age: 66 Year
  Sex: Male
  Weight: 59 kg

DRUGS (20)
  1. IRINOTECAN HCL [Suspect]
     Indication: COLON CANCER METASTATIC
     Dosage: 240 MG (CYCLIC), INTRAVENOUS
     Route: 042
     Dates: start: 20040708, end: 20040708
  2. EPINEPHRINE HYDROCHLORIDE (EPINEPHRINE HYDROCHLORIDE) [Concomitant]
  3. ACETYLSALICYLIC ACID SRT [Concomitant]
  4. ENALAPRIL MALEATE [Concomitant]
  5. NORVASC [Concomitant]
  6. ISOSORBIDE DINITRATE [Concomitant]
  7. TICLOPIDINE HCL [Concomitant]
  8. MORPHINE SULFATE [Concomitant]
  9. PROCHLORPERAZINE [Concomitant]
  10. DICLOFENAC SODIUM [Concomitant]
  11. DOMPERIDONE (DOMPERIDONE) [Concomitant]
  12. METOCLOPRAMIDE [Concomitant]
  13. LOPERAMIDE HYDROCHLORIDE [Concomitant]
  14. CARBAMAZEPINE [Concomitant]
  15. BENZYLPENICILLIN SODIUM (BENZYLPENICILLIN SODIUM) [Concomitant]
  16. FAMOTIDINE [Concomitant]
  17. ATROPINE [Concomitant]
  18. LACTOBACILLUS BIFIDUS, LYOPHILIZED (LACTOBACILLUS BIFIDUS, LYOPHILIZED [Concomitant]
  19. RANITIDNE HYDROCHLORIDE (RANITIDINE HYDROCHLORIDE) [Concomitant]
  20. STREPTOCOCCUS FAECALIS (STREPTOCOCCUS FAECALIS) [Concomitant]

REACTIONS (23)
  - ANOREXIA [None]
  - ASPIRATION [None]
  - BRONCHOPNEUMONIA [None]
  - DEHYDRATION [None]
  - DIARRHOEA [None]
  - DISEASE PROGRESSION [None]
  - DRUG INEFFECTIVE [None]
  - DYSARTHRIA [None]
  - HAEMOGLOBIN DECREASED [None]
  - HEPATIC FUNCTION ABNORMAL [None]
  - HYPOXIA [None]
  - INFECTION [None]
  - MOVEMENT DISORDER [None]
  - MULTI-ORGAN FAILURE [None]
  - NAUSEA [None]
  - PLATELET COUNT DECREASED [None]
  - PULMONARY EMBOLISM [None]
  - PULMONARY INFARCTION [None]
  - RENAL FAILURE [None]
  - RESPIRATORY FAILURE [None]
  - SHOCK [None]
  - VOMITING [None]
  - WHITE BLOOD CELL COUNT DECREASED [None]
